FAERS Safety Report 5236969-5 (Version None)
Quarter: 2007Q1

REPORT INFORMATION
  Report Type: 
  Country: None (occurrence: None)
  Receive Date: 20070213
  Receipt Date: 20070202
  Transmission Date: 20070707
  Serious: Yes (Other)
  Sender: FDA-Public Use
  Company Number: FR-JNJFOC-20070103914

PATIENT
  Age: 43 Year
  Sex: Male
  Weight: 81 kg

DRUGS (4)
  1. REMICADE [Suspect]
     Indication: ANKYLOSING SPONDYLITIS
     Dosage: 7 INFUSIONS IN TOTAL
     Route: 042
  2. CARTREX [Concomitant]
     Route: 065
  3. EFFERALGAN CODEINE [Concomitant]
     Route: 065
  4. INIPOMP [Concomitant]
     Route: 065

REACTIONS (3)
  - SINUSITIS [None]
  - SYSTEMIC LUPUS ERYTHEMATOSUS [None]
  - UPPER RESPIRATORY TRACT INFECTION [None]
